FAERS Safety Report 18777386 (Version 1)
Quarter: 2021Q1

REPORT INFORMATION
  Report Type: Other
  Country: US (occurrence: US)
  Receive Date: 20210122
  Receipt Date: 20210122
  Transmission Date: 20210419
  Serious: No
  Sender: FDA-Public Use
  Company Number: US-CHIESI USA INC.-2020STPI000465

PATIENT
  Sex: Female

DRUGS (20)
  1. CORLANOR [Concomitant]
     Active Substance: IVABRADINE HYDROCHLORIDE
  2. FLUCONAZOLE. [Concomitant]
     Active Substance: FLUCONAZOLE
  3. FLUOXETINE [Concomitant]
     Active Substance: FLUOXETINE HYDROCHLORIDE
  4. MELOXICAM. [Concomitant]
     Active Substance: MELOXICAM
  5. TRIMETHOPRIM. [Concomitant]
     Active Substance: TRIMETHOPRIM
  6. REVCOVI [Suspect]
     Active Substance: ELAPEGADEMASE-LVLR
     Indication: COMBINED IMMUNODEFICIENCY
     Dosage: 10 ML
     Route: 030
     Dates: start: 20191127
  7. CARBIDOPA AND LEVODOPA [Concomitant]
     Active Substance: CARBIDOPA\LEVODOPA
  8. MONTELUKAST [Concomitant]
     Active Substance: MONTELUKAST SODIUM
  9. CARBIDOPA. [Concomitant]
     Active Substance: CARBIDOPA
  10. PREDNISONE. [Concomitant]
     Active Substance: PREDNISONE
  11. ALPHAGAN P SOL [Concomitant]
  12. BYSTOLIC [Concomitant]
     Active Substance: NEBIVOLOL HYDROCHLORIDE
  13. ISOSORB MONO [Concomitant]
     Active Substance: ISOSORBIDE MONONITRATE
  14. NYSTATIN. [Concomitant]
     Active Substance: NYSTATIN
  15. BACLOFEN. [Concomitant]
     Active Substance: BACLOFEN
  16. NEXIUM [Concomitant]
     Active Substance: ESOMEPRAZOLE MAGNESIUM
  17. KLONOPIN [Concomitant]
     Active Substance: CLONAZEPAM
  18. AMITRIPTYLINE [Concomitant]
     Active Substance: AMITRIPTYLINE
  19. BUDESONIDE. [Concomitant]
     Active Substance: BUDESONIDE
  20. Q?PAP [Concomitant]
     Active Substance: ACETAMINOPHEN

REACTIONS (1)
  - Drug ineffective [Unknown]
